FAERS Safety Report 7862479-2 (Version None)
Quarter: 2011Q4

REPORT INFORMATION
  Report Type: 
  Country: None (occurrence: None)
  Receive Date: 20111025
  Receipt Date: 20111012
  Transmission Date: 20120403
  Serious: Yes (Other)
  Sender: FDA-Public Use
  Company Number: 2011SP048347

PATIENT
  Age: 59 Year
  Sex: Male

DRUGS (3)
  1. ASMANEX TWISTHALER [Suspect]
     Indication: PRODUCT USED FOR UNKNOWN INDICATION
     Dates: end: 20111011
  2. PULMICORT [Suspect]
     Indication: PRODUCT USED FOR UNKNOWN INDICATION
     Dates: end: 20111011
  3. SPIRIVA [Concomitant]

REACTIONS (1)
  - BRONCHOPULMONARY ASPERGILLOSIS [None]
